FAERS Safety Report 5500575-5 (Version None)
Quarter: 2007Q4

REPORT INFORMATION
  Report Type: 
  Country: None (occurrence: None)
  Receive Date: 20071029
  Receipt Date: 20071019
  Transmission Date: 20080405
  Serious: Yes (Life-Threatening, Hospitalization, Other)
  Sender: FDA-Public Use
  Company Number: CA-NOVOPROD-267685

PATIENT
  Sex: Male
  Weight: 100 kg

DRUGS (22)
  1. NOVOSEVEN [Suspect]
     Indication: TRAUMATIC HAEMORRHAGE
     Dosage: 3 DOSES
     Route: 042
     Dates: start: 20070916, end: 20070917
  2. ZANTAC [Concomitant]
     Indication: GASTRIC ULCER
     Dosage: 50 MG, TID
     Route: 042
     Dates: start: 20070917, end: 20070925
  3. ZANTAC [Concomitant]
     Dosage: 150 MG, BID
     Dates: start: 20070924, end: 20070925
  4. FRAGMIN [Concomitant]
     Indication: THROMBOSIS PROPHYLAXIS
     Dosage: 5000 IU, QD
     Route: 058
     Dates: start: 20070917, end: 20071015
  5. KEFZOL [Concomitant]
     Indication: INFECTION PROPHYLAXIS
     Dosage: 2 G, TID
     Route: 042
     Dates: start: 20070917, end: 20070926
  6. GENTAMYCIN                         /00047101/ [Concomitant]
     Indication: INFECTION PROPHYLAXIS
     Dosage: 120 MG, BID
     Route: 042
     Dates: start: 20070917, end: 20070922
  7. PROPOFOL [Concomitant]
     Indication: SEDATION
     Dosage: 300 MG, UNK
     Route: 042
     Dates: start: 20070917, end: 20070917
  8. FENTANYL CITRATE [Concomitant]
     Indication: PAIN
     Dosage: 50-200 MG/H
     Route: 042
     Dates: start: 20070917, end: 20070928
  9. VERSED [Concomitant]
     Indication: SEDATION
     Dosage: 2 MG/HR
     Route: 042
     Dates: start: 20070917, end: 20070926
  10. HUMULIN 70/30 [Concomitant]
     Indication: HYPERGLYCAEMIA
     Dosage: 0-8 UNITS/HR
     Route: 042
     Dates: start: 20070917, end: 20070926
  11. MAGNESIUM SULFATE [Concomitant]
     Indication: MINERAL SUPPLEMENTATION
     Dosage: 1 G, QD
     Route: 042
     Dates: start: 20070917, end: 20070917
  12. COLAX                              /00362801/ [Concomitant]
     Indication: CONSTIPATION PROPHYLAXIS
     Dosage: 100 MG, BID
     Route: 048
     Dates: start: 20070918, end: 20070924
  13. SENOKOT                            /00142201/ [Concomitant]
     Indication: CONSTIPATION PROPHYLAXIS
     Dosage: UNK, QID
     Route: 048
     Dates: start: 20070920, end: 20070924
  14. TRAZODONA [Concomitant]
     Indication: FEELING OF RELAXATION
     Dosage: 50 MG, EVERY 9 HRS.
     Dates: start: 20070922
  15. IBUPROFEN [Concomitant]
     Indication: PAIN
     Dosage: 400 MG, BID
     Route: 048
     Dates: start: 20070923, end: 20070925
  16. GABAPENTIN [Concomitant]
     Dosage: 300 MG, TID
     Route: 048
     Dates: start: 20070924
  17. FLAGYL                             /00012501/ [Concomitant]
     Indication: PNEUMONIA
     Dosage: 500 MG, TID
     Route: 048
     Dates: start: 20070927, end: 20071001
  18. CIPRO                              /00042702/ [Concomitant]
     Indication: PNEUMONIA
     Dosage: 400 MG, EVERY 12 HRS
     Route: 042
     Dates: start: 20070927, end: 20070929
  19. PANTOLOC                           /01263201/ [Concomitant]
     Indication: PROPHYLAXIS
     Dosage: 40 MG, BID
     Route: 042
     Dates: start: 20070926
  20. PANTOLOC                           /01263201/ [Concomitant]
     Indication: PROPHYLAXIS AGAINST GASTROINTESTINAL ULCER
  21. PIPTAZONE [Concomitant]
     Indication: PNEUMONIA
     Dosage: 3.375 MG, EVERY 9 HRS.
     Route: 042
     Dates: start: 20070927
  22. ALBUMIN (HUMAN) [Concomitant]
     Dosage: 100 CC, BID
     Route: 042
     Dates: start: 20070930

REACTIONS (4)
  - COLLAPSE OF LUNG [None]
  - DEEP VEIN THROMBOSIS [None]
  - PNEUMONIA [None]
  - VERTEBRAL INJURY [None]
